FAERS Safety Report 8135078-5 (Version None)
Quarter: 2012Q1

REPORT INFORMATION
  Report Type: 
  Country: None (occurrence: None)
  Receive Date: 20120214
  Receipt Date: 20120213
  Transmission Date: 20120608
  Serious: No
  Sender: FDA-Public Use
  Company Number: US-PFIZER INC-2012032459

PATIENT
  Sex: Male
  Weight: 73 kg

DRUGS (7)
  1. ACETYLSALICYLIC ACID [Concomitant]
     Dosage: 81 MG, UNK
  2. COZAAR [Concomitant]
     Dosage: UNK
  3. GARLIC [Concomitant]
     Dosage: 1000 MG, 1X/DAY
  4. CENTRUM [Concomitant]
     Dosage: UNK
  5. CHANTIX [Suspect]
     Indication: SMOKING CESSATION THERAPY
     Dosage: 0.5 MG, 1X/DAY
     Route: 048
     Dates: start: 20120206
  6. ASCORBIC ACID [Concomitant]
     Dosage: 500 MG, 1X/DAY
  7. ZOCOR [Concomitant]
     Dosage: UNK

REACTIONS (1)
  - ABNORMAL DREAMS [None]
